FAERS Safety Report 19046711 (Version 1)
Quarter: 2021Q1

REPORT INFORMATION
  Report Type: Report from Study
  Country: None (occurrence: US)
  Receive Date: 20210323
  Receipt Date: 20210323
  Transmission Date: 20210420
  Serious: Yes (Hospitalization)
  Sender: FDA-Public Use
  Company Number: US-ABBVIE-20K-163-3574518-00

PATIENT
  Age: 31 Year
  Sex: Female

DRUGS (2)
  1. PREDNISONE. [Suspect]
     Active Substance: PREDNISONE
     Indication: PRODUCT USED FOR UNKNOWN INDICATION
     Route: 065
  2. HUMIRA [Suspect]
     Active Substance: ADALIMUMAB
     Indication: CROHN^S DISEASE
     Route: 058
     Dates: start: 20200307

REACTIONS (16)
  - Faecal calprotectin increased [Not Recovered/Not Resolved]
  - Wrong technique in product usage process [Unknown]
  - Diarrhoea [Unknown]
  - Nausea [Unknown]
  - Adverse food reaction [Unknown]
  - Haematochezia [Unknown]
  - Headache [Not Recovered/Not Resolved]
  - Rectal haemorrhage [Unknown]
  - Weight decreased [Unknown]
  - Insomnia [Unknown]
  - Intestinal obstruction [Unknown]
  - Feeling abnormal [Recovered/Resolved]
  - Muscle strain [Unknown]
  - Decreased appetite [Unknown]
  - Constipation [Unknown]
  - Abdominal pain [Unknown]

NARRATIVE: CASE EVENT DATE: 2020
